FAERS Safety Report 17831040 (Version 3)
Quarter: 2020Q2

REPORT INFORMATION
  Report Type: Spontaneous
  Country: US (occurrence: US)
  Receive Date: 20200527
  Receipt Date: 20200615
  Transmission Date: 20200714
  Serious: Yes (Life-Threatening, Other)
  Sender: FDA-Public Use
  Company Number: US-ACTELION-A-US2020-205435

PATIENT
  Age: 61 Year
  Sex: Female

DRUGS (36)
  1. TRACLEER [Suspect]
     Active Substance: BOSENTAN
     Indication: PULMONARY ARTERIAL HYPERTENSION
     Dosage: 125 MG, BID
     Route: 048
  2. BOSENTAN. [Suspect]
     Active Substance: BOSENTAN
     Indication: PULMONARY HYPERTENSION
     Dosage: UNK
     Route: 048
     Dates: start: 201909
  3. ADVAIR HFA [Concomitant]
     Active Substance: FLUTICASONE PROPIONATE\SALMETEROL XINAFOATE
     Dosage: 1 PUFF, BID
  4. ALBUTEROL SULFATE AND IPRATROPIUM BROMIDE [Concomitant]
     Active Substance: ALBUTEROL SULFATE\IPRATROPIUM BROMIDE
     Dosage: UNK, QID
     Dates: start: 20151105, end: 20160304
  5. BUMETANIDE. [Concomitant]
     Active Substance: BUMETANIDE
     Dosage: 1 MG, QAM
     Route: 048
     Dates: start: 20150629, end: 20160304
  6. COMBIVENT [Concomitant]
     Active Substance: ALBUTEROL SULFATE\IPRATROPIUM BROMIDE
     Dosage: UNK
     Dates: start: 20091110
  7. LEVOTHYROXINE SODIUM. [Concomitant]
     Active Substance: LEVOTHYROXINE SODIUM
  8. SINGULAIR [Concomitant]
     Active Substance: MONTELUKAST SODIUM
  9. CENTANY [Concomitant]
     Active Substance: MUPIROCIN
     Dosage: UNK
     Route: 061
  10. ESOMEPRAZOLE MAGNESIUM. [Concomitant]
     Active Substance: ESOMEPRAZOLE MAGNESIUM
  11. LINZESS [Concomitant]
     Active Substance: LINACLOTIDE
  12. SYNTHROID [Concomitant]
     Active Substance: LEVOTHYROXINE SODIUM
  13. CYANOCOBALAMIN. [Concomitant]
     Active Substance: CYANOCOBALAMIN
  14. ZYRTEC [Concomitant]
     Active Substance: CETIRIZINE HYDROCHLORIDE
  15. CETIRIZINE HYDROCHLORIDE. [Concomitant]
     Active Substance: CETIRIZINE HYDROCHLORIDE
     Dosage: UNK, QD
  16. CLONIDINE HCL [Concomitant]
     Active Substance: CLONIDINE HYDROCHLORIDE
     Dosage: UNK, Q1WEEK
     Route: 048
  17. GLUMETZA [Concomitant]
     Active Substance: METFORMIN HYDROCHLORIDE
  18. GLYCOLAX [Concomitant]
     Active Substance: POLYETHYLENE GLYCOL 3350
  19. LISINOPRIL. [Concomitant]
     Active Substance: LISINOPRIL
  20. MONTELUKAST SODIUM. [Concomitant]
     Active Substance: MONTELUKAST SODIUM
  21. ALENDRONATE [Concomitant]
     Active Substance: ALENDRONATE SODIUM
     Dosage: 70 MG, Q1WEEK
     Route: 048
  22. DUONEB [Concomitant]
     Active Substance: ALBUTEROL SULFATE\IPRATROPIUM BROMIDE
  23. LOVAZA [Concomitant]
     Active Substance: OMEGA-3-ACID ETHYL ESTERS
  24. NITROGLYCERIN. [Concomitant]
     Active Substance: NITROGLYCERIN
  25. PLAVIX [Concomitant]
     Active Substance: CLOPIDOGREL BISULFATE
  26. POTASSIUM CHLORIDE. [Concomitant]
     Active Substance: POTASSIUM CHLORIDE
  27. CRESTOR [Concomitant]
     Active Substance: ROSUVASTATIN CALCIUM
     Dosage: 10 MG, QD
     Route: 048
  28. FOSAMAX [Concomitant]
     Active Substance: ALENDRONATE SODIUM
  29. ROSUVASTATIN CALCIUM. [Concomitant]
     Active Substance: ROSUVASTATIN CALCIUM
  30. ISOSORBIDE MONONITRATE. [Concomitant]
     Active Substance: ISOSORBIDE MONONITRATE
  31. NORVASC [Concomitant]
     Active Substance: AMLODIPINE BESYLATE
  32. POLYETHYLENE GLYCOL 3350. [Concomitant]
     Active Substance: POLYETHYLENE GLYCOL 3350
  33. AMLODIPINE BESYLATE. [Concomitant]
     Active Substance: AMLODIPINE BESYLATE
     Dosage: 5 MG, QD
     Route: 048
  34. CLOPIDOGREL BISULFATE. [Concomitant]
     Active Substance: CLOPIDOGREL BISULFATE
     Dosage: 75 MG, QD
     Route: 048
  35. FUROSEMIDE. [Concomitant]
     Active Substance: FUROSEMIDE
  36. NEXIUM I.V. [Concomitant]
     Active Substance: ESOMEPRAZOLE SODIUM

REACTIONS (46)
  - Tachycardia [Unknown]
  - Headache [Unknown]
  - Chest pain [Unknown]
  - Dyspepsia [Unknown]
  - Back pain [Unknown]
  - Anxiety [Unknown]
  - Muscle spasms [Unknown]
  - Corrective lens user [Unknown]
  - Nocturia [Unknown]
  - Stress [Unknown]
  - Rash [Unknown]
  - Malaise [Unknown]
  - Gait disturbance [Unknown]
  - Pollakiuria [Unknown]
  - Anger [Unknown]
  - Somnolence [Unknown]
  - Sinusitis [Unknown]
  - Cough [Unknown]
  - Varicose vein [Unknown]
  - Paraesthesia [Unknown]
  - Abdominal pain [Unknown]
  - Constipation [Unknown]
  - Pain in extremity [Unknown]
  - Drug hypersensitivity [Unknown]
  - Dysphonia [Unknown]
  - Wheezing [Unknown]
  - Pruritus [Unknown]
  - Rhinorrhoea [Unknown]
  - Nasal congestion [Unknown]
  - Mood altered [Unknown]
  - Skin disorder [Unknown]
  - Urticaria [Unknown]
  - Dyspnoea [Unknown]
  - Weight increased [Unknown]
  - Asthenia [Unknown]
  - Oropharyngeal pain [Unknown]
  - Upper-airway cough syndrome [Unknown]
  - Intermittent claudication [Unknown]
  - Joint swelling [Unknown]
  - Muscle strain [Unknown]
  - Nail disorder [Unknown]
  - Fatigue [Unknown]
  - Palpitations [Unknown]
  - Ear pain [Unknown]
  - Depression [Unknown]
  - Panic attack [Unknown]

NARRATIVE: CASE EVENT DATE: 20190912
